FAERS Safety Report 25377190 (Version 1)
Quarter: 2025Q2

REPORT INFORMATION
  Report Type: Report from Study
  Country: FR (occurrence: FR)
  Receive Date: 20250530
  Receipt Date: 20250530
  Transmission Date: 20250717
  Serious: Yes (Hospitalization)
  Sender: ABBVIE
  Company Number: FR-ABBVIE-6299153

PATIENT
  Age: 32 Year
  Sex: Male
  Weight: 67 kg

DRUGS (11)
  1. RINVOQ [Suspect]
     Active Substance: UPADACITINIB
     Indication: Psoriatic arthropathy
     Route: 058
     Dates: start: 20230414, end: 20250221
  2. ACETAMINOPHEN [Concomitant]
     Active Substance: ACETAMINOPHEN
     Indication: Pain
     Route: 048
     Dates: start: 20250320
  3. ACETAMINOPHEN [Concomitant]
     Active Substance: ACETAMINOPHEN
     Indication: Pain
     Route: 048
     Dates: start: 20240807, end: 20240822
  4. NEFOPAM [Concomitant]
     Active Substance: NEFOPAM
     Indication: Pain
     Route: 048
     Dates: start: 20240807, end: 20240822
  5. ENOXAPARIN [Concomitant]
     Active Substance: ENOXAPARIN
     Indication: Osteitis
     Route: 058
     Dates: start: 20250320
  6. ENOXAPARIN [Concomitant]
     Active Substance: ENOXAPARIN
     Indication: Osteitis
     Route: 058
     Dates: start: 20240802, end: 20241102
  7. OFLOXACIN [Concomitant]
     Active Substance: OFLOXACIN
     Indication: Osteitis
     Route: 048
     Dates: start: 20240312, end: 20250313
  8. PIPERACILLIN SODIUM\TAZOBACTAM SODIUM [Concomitant]
     Active Substance: PIPERACILLIN SODIUM\TAZOBACTAM SODIUM
     Indication: Osteitis
     Route: 042
     Dates: start: 20250314, end: 20250319
  9. SULFAMETHOXAZOLE\TRIMETHOPRIM [Concomitant]
     Active Substance: SULFAMETHOXAZOLE\TRIMETHOPRIM
     Indication: Osteitis
     Route: 048
     Dates: start: 20250320
  10. LEUCOVORIN CALCIUM [Concomitant]
     Active Substance: LEUCOVORIN CALCIUM
     Indication: Osteitis
     Route: 048
     Dates: start: 20250520
  11. AMOXICILLIN [Concomitant]
     Active Substance: AMOXICILLIN
     Indication: Osteitis
     Route: 048
     Dates: start: 20250304, end: 20250305

REACTIONS (1)
  - Skin infection [Not Recovered/Not Resolved]

NARRATIVE: CASE EVENT DATE: 20250115
